FAERS Safety Report 8286469-3 (Version None)
Quarter: 2012Q2

REPORT INFORMATION
  Report Type: 
  Country: None (occurrence: None)
  Receive Date: 20120416
  Receipt Date: 20120410
  Transmission Date: 20120825
  Serious: Yes (Death, Hospitalization)
  Sender: FDA-Public Use
  Company Number: JP-PFIZER INC-2012025777

PATIENT
  Age: 67 Year
  Sex: Male
  Weight: 60 kg

DRUGS (7)
  1. RHEUMATREX [Suspect]
     Indication: RHEUMATOID ARTHRITIS
     Dosage: 2 MG, 2X/DAY
     Route: 048
     Dates: start: 20100123, end: 20100223
  2. LANSOPRAZOLE [Concomitant]
     Dosage: UNK
     Dates: start: 20100830, end: 20101101
  3. RHEUMATREX [Suspect]
     Dosage: 8 MG, UID/QD; ORAL
     Route: 048
     Dates: start: 20100706, end: 20101101
  4. PROGRAF [Suspect]
     Indication: RHEUMATOID ARTHRITIS
     Dosage: 1 MG, UID/QD
     Route: 048
     Dates: start: 20100323
  5. CELEBREX [Suspect]
     Indication: RHEUMATOID ARTHRITIS
     Dosage: 200 MG, 2X/DAY
     Route: 048
     Dates: start: 20100123, end: 20101101
  6. RHEUMATREX [Suspect]
     Dosage: 6 MG, UID/QD; ORAL
     Route: 048
     Dates: start: 20100223, end: 20100706
  7. AZULFIDINE [Concomitant]
     Dosage: UNK
     Route: 048
     Dates: start: 20100123, end: 20100123

REACTIONS (2)
  - PNEUMONIA ASPIRATION [None]
  - BLADDER CANCER [None]
